FAERS Safety Report 24828043 (Version 1)
Quarter: 2025Q1

REPORT INFORMATION
  Report Type: Spontaneous
  Country: US (occurrence: US)
  Receive Date: 20250109
  Receipt Date: 20250109
  Transmission Date: 20250409
  Serious: No
  Sender: ETHYPHARM
  Company Number: US-ETHYPHARM-2024002753

PATIENT

DRUGS (1)
  1. BUPRENORPHINE HYDROCHLORIDE [Suspect]
     Active Substance: BUPRENORPHINE HYDROCHLORIDE
     Indication: Product used for unknown indication
     Route: 048
     Dates: start: 20240925

REACTIONS (5)
  - Drug ineffective [Unknown]
  - Rhinorrhoea [Unknown]
  - Feeling abnormal [Unknown]
  - Therapeutic response changed [Unknown]
  - Product substitution issue [Unknown]
